FAERS Safety Report 8504318-2 (Version None)
Quarter: 2012Q3

REPORT INFORMATION
  Report Type: 
  Country: None (occurrence: None)
  Receive Date: 20120711
  Receipt Date: 20120704
  Transmission Date: 20120928
  Serious: Yes (Other)
  Sender: FDA-Public Use
  Company Number: JP-PFIZER INC-2009269434

PATIENT
  Age: 4 Year
  Sex: Male
  Weight: 14.2 kg

DRUGS (3)
  1. GENOTROPIN [Suspect]
     Indication: DWARFISM
  2. GENOTROPIN [Suspect]
     Indication: BODY HEIGHT BELOW NORMAL
  3. GENOTROPIN [Suspect]
     Indication: SMALL FOR DATES BABY
     Dosage: 3.0 MG, WEEKLY (0.6 MG FIVE TIMES A WEEK)
     Dates: start: 20090323

REACTIONS (1)
  - FEBRILE CONVULSION [None]
